FAERS Safety Report 7034872-1 (Version None)
Quarter: 2010Q4

REPORT INFORMATION
  Report Type: 
  Country: None (occurrence: None)
  Receive Date: 20101008
  Receipt Date: 20100930
  Transmission Date: 20110411
  Serious: Yes (Other)
  Sender: FDA-Public Use
  Company Number: US-PFIZER INC-2010125173

PATIENT
  Sex: Female
  Weight: 77 kg

DRUGS (5)
  1. CHANTIX [Suspect]
     Indication: SMOKING CESSATION THERAPY
     Dosage: UNK
     Route: 048
     Dates: start: 20080101
  2. CHANTIX [Suspect]
     Dosage: UNK
     Route: 048
     Dates: start: 20090101
  3. CHANTIX [Suspect]
     Dosage: UNK
     Route: 048
     Dates: start: 20100426
  4. CHANTIX [Suspect]
     Dosage: 1 MG, 2X/DAY
     Route: 048
  5. HYDROCHLOROTHIAZIDE [Concomitant]
     Indication: HYPERTENSION
     Dosage: 50 MG, 1X/DAY
     Route: 048

REACTIONS (2)
  - NAUSEA [None]
  - WEIGHT INCREASED [None]
